FAERS Safety Report 23139628 (Version 2)
Quarter: 2024Q2

REPORT INFORMATION
  Report Type: Spontaneous
  Country: TW (occurrence: TW)
  Receive Date: 20231102
  Receipt Date: 20240612
  Transmission Date: 20240716
  Serious: Yes (Death, Hospitalization, Other)
  Sender: FDA-Public Use
  Company Number: TW-ABBVIE-5478290

PATIENT
  Sex: Male
  Weight: 60 kg

DRUGS (6)
  1. SEVOFLURANE [Suspect]
     Active Substance: SEVOFLURANE
     Indication: Prophylaxis
     Route: 055
  2. PANTOPRAZOLE SODIUM [Suspect]
     Active Substance: PANTOPRAZOLE SODIUM
     Indication: Prophylaxis
     Route: 065
  3. ACETAMINOPHEN [Suspect]
     Active Substance: ACETAMINOPHEN
     Indication: Product used for unknown indication
     Dosage: 40 MG
     Route: 065
  4. LUCKYHEPA [Concomitant]
     Indication: Product used for unknown indication
  5. LACTULOSE [Concomitant]
     Active Substance: LACTULOSE
     Indication: Product used for unknown indication
  6. NEOMYCIN [Concomitant]
     Active Substance: NEOMYCIN
     Indication: Product used for unknown indication

REACTIONS (19)
  - Liver injury [Fatal]
  - Dyspnoea [Unknown]
  - Hepatic failure [Fatal]
  - Hepatitis fulminant [Fatal]
  - Chest discomfort [Unknown]
  - Cardiac failure [Unknown]
  - Fluid retention [Unknown]
  - Pneumonia [Unknown]
  - Coronary artery occlusion [Unknown]
  - Acidosis [Unknown]
  - Blood lactic acid increased [Not Recovered/Not Resolved]
  - Cardiac arrest [Unknown]
  - Blood bilirubin increased [Unknown]
  - Ischaemic hepatitis [Unknown]
  - Disseminated intravascular coagulation [Unknown]
  - Aspartate aminotransferase decreased [Unknown]
  - Alanine aminotransferase decreased [Unknown]
  - Multiple organ dysfunction syndrome [Unknown]
  - Nausea [Unknown]
